FAERS Safety Report 7110616-X (Version None)
Quarter: 2010Q4

REPORT INFORMATION
  Report Type: 
  Country: None (occurrence: None)
  Receive Date: 20101118
  Receipt Date: 20101104
  Transmission Date: 20110411
  Serious: Yes (Hospitalization)
  Sender: FDA-Public Use
  Company Number: PHHY2010CA66908

PATIENT
  Sex: Female

DRUGS (15)
  1. CLOZARIL [Suspect]
     Indication: SCHIZOPHRENIA
     Dosage: UNK
     Dates: start: 20080401
  2. CLOZARIL [Suspect]
     Dosage: 100 MG QAM
     Dates: start: 20080301
  3. CLOZARIL [Suspect]
     Dosage: 400 MG QHS
  4. COLACE [Concomitant]
  5. LEVOTHYROXINE SODIUM [Concomitant]
  6. ATROVENT [Concomitant]
  7. FLOVENT [Concomitant]
  8. SUPERDROL PRN [Concomitant]
  9. LOXAPAC [Concomitant]
     Dosage: 100 HS AND 50 AM
  10. KEMADRIN [Concomitant]
     Dosage: 10 MG HS
  11. VENTOLIN [Concomitant]
  12. FENOFIBRATE [Concomitant]
  13. ASPIRIN [Concomitant]
     Dosage: 80 DAILY
  14. ABILIFY [Concomitant]
     Dosage: 30 UNK, BID
  15. ATIVAN [Concomitant]
     Dosage: 2 MG HS

REACTIONS (4)
  - BRONCHITIS [None]
  - TOOTH ABSCESS [None]
  - TOOTH INFECTION [None]
  - WHITE BLOOD CELL COUNT DECREASED [None]
